FAERS Safety Report 8836592 (Version 2)
Quarter: 2012Q4

REPORT INFORMATION
  Report Type: Spontaneous
  Country: IT (occurrence: None)
  Receive Date: 20121009
  Receipt Date: 20121023
  Transmission Date: 20130627
  Serious: Yes (Death)
  Sender: FDA-Public Use
  Company Number: APL-2012-00182

PATIENT
  Age: 68 Year
  Sex: Male

DRUGS (1)
  1. PECFENT [Suspect]
     Indication: CANCER PAIN
     Dosage: 100 unk, unk
     Route: 045
     Dates: start: 201205

REACTIONS (3)
  - Drug abuse [None]
  - Intentional drug misuse [None]
  - Overdose [None]
